FAERS Safety Report 9308173 (Version 2)
Quarter: 2013Q3

REPORT INFORMATION
  Report Type: Spontaneous
  Country: US (occurrence: US)
  Receive Date: 20130522
  Receipt Date: 20130726
  Transmission Date: 20140515
  Serious: No
  Sender: FDA-Public Use
  Company Number: US-PFIZER INC-2013153257

PATIENT
  Age: 65 Year
  Sex: Female
  Weight: 73 kg

DRUGS (2)
  1. LEVOXYL [Suspect]
     Dosage: 88 UG, UNK
  2. LEVOTHYROXINE SODIUM [Suspect]
     Indication: PALPITATIONS
     Dosage: 88 UG, UNK
     Dates: start: 201305, end: 201305

REACTIONS (1)
  - Palpitations [Recovered/Resolved]
